FAERS Safety Report 13843579 (Version 1)
Quarter: 2017Q3

REPORT INFORMATION
  Report Type: Spontaneous
  Country: US (occurrence: US)
  Receive Date: 20170808
  Receipt Date: 20170808
  Transmission Date: 20171127
  Serious: No
  Sender: FDA-Public Use
  Company Number: None

PATIENT

DRUGS (3)
  1. PEDIOTIC [Suspect]
     Active Substance: HYDROCORTISONE\NEOMYCIN SULFATE\POLYMYXIN B SULFATE
  2. XEROFORM XEROFORM [Suspect]
     Active Substance: DEVICE
  3. PETROLEUM JELLY [Suspect]
     Active Substance: PETROLATUM

REACTIONS (2)
  - Drug dispensing error [None]
  - Transcription medication error [None]
